FAERS Safety Report 14454131 (Version 1)
Quarter: 2018Q1

REPORT INFORMATION
  Report Type: Spontaneous
  Country: US (occurrence: US)
  Receive Date: 20180129
  Receipt Date: 20180129
  Transmission Date: 20180509
  Serious: Yes (Other)
  Sender: FDA-Public Use
  Company Number: US-PFIZER INC-2018032151

PATIENT
  Age: 44 Year
  Sex: Female
  Weight: 70 kg

DRUGS (1)
  1. ADVIL [Suspect]
     Active Substance: IBUPROFEN
     Indication: PAIN
     Dosage: 400 MG,  TWO TABLETS
     Route: 048

REACTIONS (9)
  - Coeliac disease [Unknown]
  - Nausea [Not Recovered/Not Resolved]
  - Rash [Not Recovered/Not Resolved]
  - Sinusitis [Unknown]
  - Facial pain [Unknown]
  - Diarrhoea [Unknown]
  - Influenza [Recovering/Resolving]
  - Condition aggravated [Unknown]
  - Toothache [Unknown]

NARRATIVE: CASE EVENT DATE: 20180116
